FAERS Safety Report 11157066 (Version 3)
Quarter: 2015Q3

REPORT INFORMATION
  Report Type: Spontaneous
  Country: PL (occurrence: PL)
  Receive Date: 20150602
  Receipt Date: 20150714
  Transmission Date: 20151125
  Serious: Yes (Death, Hospitalization)
  Sender: FDA-Public Use
  Company Number: PL-TEVA-566568ISR

PATIENT
  Age: 34 Year
  Sex: Male
  Weight: 82.5 kg

DRUGS (1)
  1. TEVAGRASTIM [Suspect]
     Active Substance: FILGRASTIM
     Indication: PROPHYLAXIS
     Route: 058
     Dates: start: 20141014, end: 20141015

REACTIONS (4)
  - Sudden death [Fatal]
  - Respiratory failure [Fatal]
  - Circulatory collapse [Fatal]
  - Embolism [Fatal]

NARRATIVE: CASE EVENT DATE: 20141016
